FAERS Safety Report 9436081 (Version 1)
Quarter: 2013Q3

REPORT INFORMATION
  Report Type: Spontaneous
  Country: IM (occurrence: IM)
  Receive Date: 20130801
  Receipt Date: 20130801
  Transmission Date: 20140515
  Serious: Yes (Life-Threatening)
  Sender: FDA-Public Use
  Company Number: IM-TEVA-414635ISR

PATIENT
  Age: 71 Year
  Sex: Female
  Weight: 55 kg

DRUGS (6)
  1. PACLITAXEL [Suspect]
     Dosage: CYCLE -EVERY 21 DAYS
     Route: 042
     Dates: start: 20130523, end: 20130613
  2. CARBOPLATIN [Concomitant]
     Dates: start: 20130523
  3. ONDANSETRON [Concomitant]
     Indication: PREMEDICATION
     Dosage: 16 MG STAT DOSE
     Route: 048
     Dates: start: 20130523, end: 20130613
  4. DEXAMETHASONE [Concomitant]
     Indication: PREMEDICATION
     Dosage: 20 MG STAT DOSE
     Route: 048
     Dates: start: 20130523, end: 20130613
  5. PIRITON [Concomitant]
     Indication: PREMEDICATION
     Dosage: 10 MG STAT DOSE
     Route: 042
     Dates: start: 20130523, end: 20130613
  6. RANITIDINE [Concomitant]
     Indication: PREMEDICATION
     Dosage: 50 MG STAT DOSE
     Route: 042
     Dates: start: 20130523, end: 20130613

REACTIONS (9)
  - Hypersensitivity [Recovered/Resolved]
  - Erythema [Recovered/Resolved]
  - Erythema [Recovered/Resolved]
  - Chest pain [Recovered/Resolved]
  - Depressed level of consciousness [Recovered/Resolved]
  - Dizziness [Recovered/Resolved]
  - Nausea [Recovered/Resolved]
  - Back pain [Recovered/Resolved]
  - Dyspnoea [Recovered/Resolved]
